FAERS Safety Report 18928076 (Version 1)
Quarter: 2021Q1

REPORT INFORMATION
  Report Type: Spontaneous
  Country: US (occurrence: US)
  Receive Date: 20210223
  Receipt Date: 20210223
  Transmission Date: 20210420
  Serious: Yes (Other)
  Sender: FDA-Public Use
  Company Number: US-GLAXOSMITHKLINE-US2021GSK050535

PATIENT
  Sex: Female

DRUGS (30)
  1. RANITIDINE. [Suspect]
     Active Substance: RANITIDINE
     Indication: GASTROOESOPHAGEAL REFLUX DISEASE
  2. ZANTAC [Suspect]
     Active Substance: RANITIDINE HYDROCHLORIDE
     Indication: GASTROOESOPHAGEAL REFLUX DISEASE
  3. ZANTAC [Suspect]
     Active Substance: RANITIDINE HYDROCHLORIDE
     Indication: GASTROOESOPHAGEAL REFLUX DISEASE
  4. RANITIDINE CAPSULE [Suspect]
     Active Substance: RANITIDINE
     Indication: DYSPEPSIA
     Dosage: 300 MG BOTH
     Route: 065
     Dates: start: 199001, end: 201711
  5. RANITIDINE. [Suspect]
     Active Substance: RANITIDINE
     Indication: ABDOMINAL DISCOMFORT
  6. RANITIDINE. [Suspect]
     Active Substance: RANITIDINE
     Indication: DYSPEPSIA
  7. RANITIDINE. [Suspect]
     Active Substance: RANITIDINE
     Indication: DYSPEPSIA
  8. ZANTAC [Suspect]
     Active Substance: RANITIDINE HYDROCHLORIDE
     Indication: DYSPEPSIA
     Dosage: 300 MG, QD
     Route: 065
     Dates: start: 199001, end: 201711
  9. RANITIDINE CAPSULE [Suspect]
     Active Substance: RANITIDINE
     Indication: DYSPEPSIA
     Dosage: 150 MG BOTH
     Route: 065
     Dates: start: 199001, end: 201711
  10. RANITIDINE. [Suspect]
     Active Substance: RANITIDINE
     Indication: DYSPEPSIA
     Dosage: 150 MG BOTH
     Route: 065
     Dates: start: 199001, end: 201711
  11. ZANTAC [Suspect]
     Active Substance: RANITIDINE HYDROCHLORIDE
     Indication: ABDOMINAL DISCOMFORT
  12. RANITIDINE CAPSULE [Suspect]
     Active Substance: RANITIDINE
     Indication: DYSPEPSIA
  13. RANITIDINE. [Suspect]
     Active Substance: RANITIDINE
     Indication: ABDOMINAL DISCOMFORT
  14. RANITIDINE. [Suspect]
     Active Substance: RANITIDINE
     Indication: DYSPEPSIA
     Dosage: 300 MG, QD
     Route: 065
     Dates: start: 199001, end: 201711
  15. ZANTAC [Suspect]
     Active Substance: RANITIDINE HYDROCHLORIDE
     Indication: DYSPEPSIA
  16. RANITIDINE CAPSULE [Suspect]
     Active Substance: RANITIDINE
     Indication: ABDOMINAL DISCOMFORT
  17. ZANTAC [Suspect]
     Active Substance: RANITIDINE HYDROCHLORIDE
     Indication: DYSPEPSIA
     Dosage: 300 MG, QD
     Route: 065
     Dates: start: 199001, end: 201711
  18. ZANTAC [Suspect]
     Active Substance: RANITIDINE HYDROCHLORIDE
     Indication: ABDOMINAL DISCOMFORT
  19. RANITIDINE. [Suspect]
     Active Substance: RANITIDINE
     Indication: DYSPEPSIA
     Dosage: 150 MG BOTH
     Route: 065
     Dates: start: 199001, end: 201711
  20. RANITIDINE. [Suspect]
     Active Substance: RANITIDINE
     Indication: GASTROOESOPHAGEAL REFLUX DISEASE
  21. RANITIDINE. [Suspect]
     Active Substance: RANITIDINE
     Indication: GASTROOESOPHAGEAL REFLUX DISEASE
  22. RANITIDINE. [Suspect]
     Active Substance: RANITIDINE
     Indication: ABDOMINAL DISCOMFORT
  23. ZANTAC [Suspect]
     Active Substance: RANITIDINE HYDROCHLORIDE
     Indication: DYSPEPSIA
     Dosage: 150 MG BOTH
     Route: 065
     Dates: start: 199001, end: 201711
  24. ZANTAC [Suspect]
     Active Substance: RANITIDINE HYDROCHLORIDE
     Indication: DYSPEPSIA
  25. RANITIDINE. [Suspect]
     Active Substance: RANITIDINE
     Indication: DYSPEPSIA
  26. ZANTAC [Suspect]
     Active Substance: RANITIDINE HYDROCHLORIDE
     Indication: DYSPEPSIA
     Dosage: 150 MG BOTH
     Route: 065
     Dates: start: 199001, end: 201711
  27. RANITIDINE CAPSULE [Suspect]
     Active Substance: RANITIDINE
     Indication: GASTROOESOPHAGEAL REFLUX DISEASE
  28. RANITIDINE. [Suspect]
     Active Substance: RANITIDINE
     Indication: DYSPEPSIA
     Dosage: 300 MG, QD
     Route: 065
     Dates: start: 199001, end: 201711
  29. RANITIDINE. [Suspect]
     Active Substance: RANITIDINE
     Indication: DYSPEPSIA
  30. RANITIDINE. [Suspect]
     Active Substance: RANITIDINE
     Indication: DYSPEPSIA
     Dosage: 300 MG, QD
     Route: 065
     Dates: start: 199001, end: 201711

REACTIONS (2)
  - Colorectal cancer [Unknown]
  - Gastric cancer [Unknown]
